FAERS Safety Report 7745724-3 (Version None)
Quarter: 2011Q3

REPORT INFORMATION
  Report Type: 
  Country: None (occurrence: None)
  Receive Date: 20110825
  Receipt Date: 20110601
  Transmission Date: 20111222
  Serious: No
  Sender: FDA-Public Use
  Company Number: 329587

PATIENT
  Age: 46 Year
  Sex: Female

DRUGS (4)
  1. VICTOZA [Suspect]
     Indication: BLOOD GLUCOSE INCREASED
     Dosage: 0.6 MG, QD, SUBCUTANEOUS 1.2 MG, QD, SUBCUTANEOUS 1.8 MG, QD, SUBCUTANEOUS 1.2 MG, QD, SUBCUTANEOUS
     Route: 058
  2. VICTOZA [Suspect]
     Indication: OBESITY
     Dosage: 0.6 MG, QD, SUBCUTANEOUS 1.2 MG, QD, SUBCUTANEOUS 1.8 MG, QD, SUBCUTANEOUS 1.2 MG, QD, SUBCUTANEOUS
     Route: 058
  3. VICTOZA [Suspect]
     Indication: BLOOD GLUCOSE INCREASED
     Dosage: 0.6 MG, QD, SUBCUTANEOUS 1.2 MG, QD, SUBCUTANEOUS 1.8 MG, QD, SUBCUTANEOUS 1.2 MG, QD, SUBCUTANEOUS
     Route: 058
     Dates: start: 20110501
  4. VICTOZA [Suspect]
     Indication: OBESITY
     Dosage: 0.6 MG, QD, SUBCUTANEOUS 1.2 MG, QD, SUBCUTANEOUS 1.8 MG, QD, SUBCUTANEOUS 1.2 MG, QD, SUBCUTANEOUS
     Route: 058
     Dates: start: 20110501

REACTIONS (4)
  - HEADACHE [None]
  - ASTHENIA [None]
  - HYPOTENSION [None]
  - FEELING COLD [None]
